FAERS Safety Report 11271259 (Version 1)
Quarter: 2015Q3

REPORT INFORMATION
  Report Type: Spontaneous
  Country: US (occurrence: US)
  Receive Date: 20150714
  Receipt Date: 20150714
  Transmission Date: 20151125
  Serious: Yes (Other)
  Sender: FDA-Public Use
  Company Number: ALCN2015US004310

PATIENT
  Age: 51 Year
  Sex: Female

DRUGS (2)
  1. VIGAMOX [Suspect]
     Active Substance: MOXIFLOXACIN HYDROCHLORIDE
     Indication: CONJUNCTIVITIS
     Dosage: 1 GTT, BID
     Route: 047
     Dates: start: 20150704, end: 20150704
  2. VIGAMOX [Suspect]
     Active Substance: MOXIFLOXACIN HYDROCHLORIDE
     Dosage: 1 GTT, Q2H
     Route: 047
     Dates: start: 20150705, end: 20150706

REACTIONS (5)
  - Off label use [Recovered/Resolved]
  - Seizure [Recovered/Resolved]
  - Contusion [Recovering/Resolving]
  - Pain in jaw [Recovering/Resolving]
  - Scratch [Recovering/Resolving]

NARRATIVE: CASE EVENT DATE: 20150705
